FAERS Safety Report 9001109 (Version 1)
Quarter: 2013Q1

REPORT INFORMATION
  Report Type: Spontaneous
  Country: US (occurrence: US)
  Receive Date: 20130107
  Receipt Date: 20130107
  Transmission Date: 20140127
  Serious: Yes (Death)
  Sender: FDA-Public Use
  Company Number: US-JNJFOC-20121213349

PATIENT
  Sex: Male

DRUGS (15)
  1. ZYTIGA [Suspect]
     Indication: PROSTATE CANCER
     Dosage: 1000 MG A DAY (250 MG TABLET)
     Route: 048
     Dates: start: 2011
  2. DILTIAZEM [Concomitant]
     Indication: CARDIAC DISORDER
     Route: 065
  3. MEGESTROL [Concomitant]
     Indication: APPETITE DISORDER
     Route: 065
  4. MORPHINE [Concomitant]
     Indication: PAIN
     Route: 048
  5. HYDROCODONE [Concomitant]
     Indication: PAIN
     Dosage: 5/325 MG
     Route: 048
  6. SENNAGEN [Concomitant]
     Route: 048
  7. UNKNOWN MEDICATION [Concomitant]
     Route: 065
  8. PRILOSEC [Concomitant]
     Route: 065
  9. PREDNISONE [Concomitant]
     Route: 065
  10. CITALOPRAM [Concomitant]
     Route: 065
  11. AMLODIPINE [Concomitant]
     Route: 048
  12. DEXAMETHASONE [Concomitant]
     Route: 048
  13. NORVASC [Concomitant]
     Indication: BLOOD PRESSURE
     Route: 048
  14. CALCIUM [Concomitant]
     Route: 048
  15. K DUR [Concomitant]
     Indication: BLOOD POTASSIUM
     Route: 048

REACTIONS (1)
  - Prostate cancer [Fatal]
